FAERS Safety Report 13124221 (Version 1)
Quarter: 2017Q1

REPORT INFORMATION
  Report Type: Spontaneous
  Country: US (occurrence: US)
  Receive Date: 20170118
  Receipt Date: 20170118
  Transmission Date: 20170428
  Serious: No
  Sender: FDA-Public Use
  Company Number: US-BEH-2017077155

PATIENT
  Sex: Female
  Weight: 69.39 kg

DRUGS (37)
  1. PRIVIGEN [Suspect]
     Active Substance: HUMAN IMMUNOGLOBULIN G
     Indication: HUMORAL IMMUNE DEFECT
     Dosage: 20 G, QMT
     Route: 042
     Dates: start: 20160926
  2. CEFUROXIME. [Concomitant]
     Active Substance: CEFUROXIME
     Route: 065
  3. KLONOPIN [Concomitant]
     Active Substance: CLONAZEPAM
     Route: 065
  4. SINGULAIR [Concomitant]
     Active Substance: MONTELUKAST SODIUM
     Route: 065
  5. NEURONTIN [Concomitant]
     Active Substance: GABAPENTIN
     Route: 065
  6. SAVELLA [Concomitant]
     Active Substance: MILNACIPRAN HYDROCHLORIDE
     Route: 065
  7. COMPAZINE                          /00013302/ [Concomitant]
     Active Substance: PROCHLORPERAZINE EDISYLATE
     Route: 065
  8. SYNTHROID [Concomitant]
     Active Substance: LEVOTHYROXINE SODIUM
     Route: 065
  9. BENADRYL [Concomitant]
     Active Substance: DIPHENHYDRAMINE HYDROCHLORIDE
     Route: 065
  10. FIORICET [Concomitant]
     Active Substance: ACETAMINOPHEN\BUTALBITAL\CAFFEINE
     Route: 065
  11. LUMIGAN [Concomitant]
     Active Substance: BIMATOPROST
     Route: 065
  12. LASIX [Concomitant]
     Active Substance: FUROSEMIDE
     Route: 065
  13. AZOPT [Concomitant]
     Active Substance: BRINZOLAMIDE
     Route: 065
  14. ACETAMINOPHEN. [Concomitant]
     Active Substance: ACETAMINOPHEN
     Route: 065
  15. LIDOCAINE. [Concomitant]
     Active Substance: LIDOCAINE
     Route: 065
  16. SODIUM CHLORIDE. [Concomitant]
     Active Substance: SODIUM CHLORIDE
     Route: 065
  17. ZYRTEC [Concomitant]
     Active Substance: CETIRIZINE HYDROCHLORIDE
     Route: 065
  18. NYSTOP [Concomitant]
     Active Substance: NYSTATIN
     Route: 065
  19. DIPHENHYDRAMINE. [Concomitant]
     Active Substance: DIPHENHYDRAMINE
     Route: 065
  20. SOOTHE XP [Concomitant]
     Active Substance: LIGHT MINERAL OIL\MINERAL OIL
     Route: 065
  21. DEXILANT [Concomitant]
     Active Substance: DEXLANSOPRAZOLE
     Route: 065
  22. NITROSTAT [Concomitant]
     Active Substance: NITROGLYCERIN
     Route: 065
  23. FLUTICASONE FUROATE [Concomitant]
     Active Substance: FLUTICASONE FUROATE
     Route: 065
  24. TOPAMAX [Concomitant]
     Active Substance: TOPIRAMATE
     Route: 065
  25. COZAAR [Concomitant]
     Active Substance: LOSARTAN POTASSIUM
     Route: 065
  26. REFRESH TEARS [Concomitant]
     Active Substance: CARBOXYMETHYLCELLULOSE SODIUM
     Route: 065
  27. RESTASIS [Concomitant]
     Active Substance: CYCLOSPORINE
     Route: 065
  28. VENTOLIN [Concomitant]
     Active Substance: ALBUTEROL SULFATE
     Route: 065
  29. EPIPEN [Concomitant]
     Active Substance: EPINEPHRINE
     Route: 065
  30. PROVENTIL [Concomitant]
     Active Substance: ALBUTEROL
     Route: 065
  31. VITAMIN D2 [Concomitant]
     Active Substance: ERGOCALCIFEROL
     Route: 065
  32. MORPHINE [Concomitant]
     Active Substance: MORPHINE
     Route: 065
  33. NUCYNTA [Concomitant]
     Active Substance: TAPENTADOL HYDROCHLORIDE
     Route: 065
  34. PRAVACHOL [Concomitant]
     Active Substance: PRAVASTATIN SODIUM
     Route: 065
  35. ADDERALL [Concomitant]
     Active Substance: AMPHETAMINE ASPARTATE\AMPHETAMINE SULFATE\DEXTROAMPHETAMINE SACCHARATE\DEXTROAMPHETAMINE SULFATE
     Route: 065
  36. ZANAFLEX [Concomitant]
     Active Substance: TIZANIDINE HYDROCHLORIDE
     Route: 065
  37. COUMADIN [Concomitant]
     Active Substance: WARFARIN SODIUM
     Route: 065

REACTIONS (12)
  - Depression [Unknown]
  - Hypoaesthesia [Unknown]
  - Fatigue [Unknown]
  - Balance disorder [Unknown]
  - Fall [Unknown]
  - Feeling abnormal [Unknown]
  - Affect lability [Unknown]
  - Neuralgia [Unknown]
  - Back pain [Unknown]
  - Dysarthria [Unknown]
  - Anger [Unknown]
  - Limb discomfort [Unknown]
